FAERS Safety Report 6601740-6 (Version None)
Quarter: 2010Q1

REPORT INFORMATION
  Report Type: 
  Country: None (occurrence: None)
  Receive Date: 20100225
  Receipt Date: 20081204
  Transmission Date: 20100710
  Serious: Yes (Other)
  Sender: FDA-Public Use
  Company Number: US-BRISTOL-MYERS SQUIBB COMPANY-14377683

PATIENT
  Age: 55 Year
  Sex: Female

DRUGS (7)
  1. ORENCIA [Suspect]
     Indication: RHEUMATOID ARTHRITIS
     Route: 042
     Dates: start: 20080115, end: 20081010
  2. METHOTREXATE [Suspect]
  3. ARAVA [Suspect]
  4. AMITRIPTYLINE HCL [Concomitant]
  5. PLAQUENIL [Concomitant]
  6. NAPROXEN [Concomitant]
  7. VITAMIN D [Concomitant]

REACTIONS (1)
  - ENDOMETRIAL CANCER [None]
